FAERS Safety Report 12727216 (Version 1)
Quarter: 2016Q3

REPORT INFORMATION
  Report Type: Report from Study
  Country: FR (occurrence: FR)
  Receive Date: 20160909
  Receipt Date: 20160909
  Transmission Date: 20161109
  Serious: Yes (Disabling)
  Sender: FDA-Public Use
  Company Number: FR-ROCHE-1826771

PATIENT
  Age: 44 Year
  Sex: Male
  Weight: 80 kg

DRUGS (1)
  1. CELLCEPT [Suspect]
     Active Substance: MYCOPHENOLATE MOFETIL\MYCOPHENOLATE MOFETIL HYDROCHLORIDE
     Indication: PRIMARY PROGRESSIVE MULTIPLE SCLEROSIS
     Route: 065
     Dates: start: 201509

REACTIONS (3)
  - Mobility decreased [Unknown]
  - Muscular weakness [Unknown]
  - Off label use [Unknown]

NARRATIVE: CASE EVENT DATE: 201509
